FAERS Safety Report 10170739 (Version 2)
Quarter: 2014Q2

REPORT INFORMATION
  Report Type: Spontaneous
  Country: US (occurrence: US)
  Receive Date: 20140514
  Receipt Date: 20140627
  Transmission Date: 20141212
  Serious: No
  Sender: FDA-Public Use
  Company Number: US-BIOGENIDEC-2014BI044610

PATIENT
  Sex: Female

DRUGS (1)
  1. AVONEX [Suspect]
     Indication: MULTIPLE SCLEROSIS
     Route: 030
     Dates: start: 19980901

REACTIONS (7)
  - Drug ineffective [Recovered/Resolved]
  - Influenza like illness [Recovered/Resolved]
  - Vomiting [Unknown]
  - Diarrhoea [Unknown]
  - Malaise [Unknown]
  - Diabetes mellitus [Not Recovered/Not Resolved]
  - Injection site pain [Recovered/Resolved]
